FAERS Safety Report 10466020 (Version 1)
Quarter: 2014Q3

REPORT INFORMATION
  Report Type: Report from Study
  Country: US (occurrence: US)
  Receive Date: 20140922
  Receipt Date: 20140922
  Transmission Date: 20150326
  Serious: Yes (Other)
  Sender: FDA-Public Use
  Company Number: US-ROCHE-1464262

PATIENT
  Age: 6 Year
  Sex: Male
  Weight: 19.6 kg

DRUGS (5)
  1. PATADAY [Concomitant]
     Active Substance: OLOPATADINE HYDROCHLORIDE
     Route: 065
  2. NUTROPIN AQ [Suspect]
     Active Substance: SOMATROPIN
     Indication: GROWTH HORMONE DEFICIENCY
     Dosage: 6 XWEEK
     Route: 058
     Dates: start: 20110902
  3. NUTROPIN AQ [Suspect]
     Active Substance: SOMATROPIN
     Route: 058
     Dates: start: 20131007
  4. ALLERGY SHOT [Concomitant]
     Active Substance: UNSPECIFIED INGREDIENT
  5. ALLEGRA [Concomitant]
     Active Substance: FEXOFENADINE HYDROCHLORIDE

REACTIONS (5)
  - Growth retardation [Unknown]
  - Headache [Unknown]
  - Bruxism [Unknown]
  - Limb asymmetry [Unknown]
  - Lobar pneumonia [Unknown]

NARRATIVE: CASE EVENT DATE: 20131007
